FAERS Safety Report 22195544 (Version 2)
Quarter: 2023Q2

REPORT INFORMATION
  Report Type: Spontaneous
  Country: US (occurrence: US)
  Receive Date: 20230411
  Receipt Date: 20230426
  Transmission Date: 20230721
  Serious: No
  Sender: FDA-Public Use
  Company Number: US-GSKCCFUS-Case-01668887_AE-94198

PATIENT
  Sex: Female

DRUGS (2)
  1. ANORO ELLIPTA [Suspect]
     Active Substance: UMECLIDINIUM BROMIDE\VILANTEROL TRIFENATATE
     Indication: Product used for unknown indication
     Dosage: 1 PUFF(S), QD (62.5/25 MCG)
     Route: 055
     Dates: start: 2023
  2. ALBUTEROL SULFATE [Suspect]
     Active Substance: ALBUTEROL SULFATE
     Indication: Dyspnoea
     Dosage: UNK

REACTIONS (12)
  - Dyspnoea [Unknown]
  - Dry mouth [Unknown]
  - Insomnia [Unknown]
  - Nausea [Unknown]
  - Product residue present [Unknown]
  - Panic attack [Unknown]
  - Feeling jittery [Unknown]
  - Anxiety [Unknown]
  - Flatulence [Unknown]
  - Constipation [Unknown]
  - Wrong technique in device usage process [Unknown]
  - Drug effect less than expected [Unknown]
